FAERS Safety Report 17073985 (Version 1)
Quarter: 2019Q4

REPORT INFORMATION
  Report Type: Spontaneous
  Country: IT (occurrence: IT)
  Receive Date: 20191126
  Receipt Date: 20191126
  Transmission Date: 20200122
  Serious: Yes (Other)
  Sender: FDA-Public Use
  Company Number: IT-SA-2019SA322346

PATIENT
  Age: 30 Year
  Sex: Female

DRUGS (3)
  1. EFEXOR [Concomitant]
     Active Substance: VENLAFAXINE HYDROCHLORIDE
     Dosage: 1 DF, UNK
     Route: 048
  2. GINODEN [Concomitant]
     Active Substance: ETHINYL ESTRADIOL\GESTODENE
     Dosage: 1 DF, UNK
     Route: 048
  3. STILNOX [Suspect]
     Active Substance: ZOLPIDEM TARTRATE
     Indication: INSOMNIA
     Dosage: 1 DF, PRN
     Route: 048
     Dates: start: 20191007, end: 20191007

REACTIONS (4)
  - Poverty of speech [Recovering/Resolving]
  - Amnesia [Recovering/Resolving]
  - Loss of consciousness [Recovering/Resolving]
  - Muscle rigidity [Recovering/Resolving]

NARRATIVE: CASE EVENT DATE: 20191008
